FAERS Safety Report 25949555 (Version 1)
Quarter: 2025Q4

REPORT INFORMATION
  Report Type: Report from Study
  Country: US (occurrence: US)
  Receive Date: 20251022
  Receipt Date: 20251022
  Transmission Date: 20260117
  Serious: Yes (Hospitalization)
  Sender: AVADEL CNS PHARMACEUTICALS, LLC
  Company Number: US-AVADEL CNS PHARMACEUTICALS, LLC-2025AVA01135

PATIENT
  Sex: Male
  Weight: 54.422 kg

DRUGS (13)
  1. LUMRYZ [Suspect]
     Active Substance: SODIUM OXYBATE
     Indication: Narcolepsy
     Dosage: 4.5 G, ONCE NIGHTLY AT BEDTIME
     Route: 048
     Dates: start: 202504, end: 202504
  2. LUMRYZ [Suspect]
     Active Substance: SODIUM OXYBATE
     Indication: Cataplexy
  3. LUMRYZ [Suspect]
     Active Substance: SODIUM OXYBATE
     Indication: Narcolepsy
     Dosage: 6 G, ONCE NIGHTLY AT BEDTIME
     Route: 048
     Dates: start: 202504, end: 202504
  4. LUMRYZ [Suspect]
     Active Substance: SODIUM OXYBATE
     Indication: Cataplexy
  5. LUMRYZ [Suspect]
     Active Substance: SODIUM OXYBATE
     Indication: Narcolepsy
     Dosage: 7.5 G, ONCE NIGHTLY AT BEDTIME
     Route: 048
     Dates: start: 202504, end: 2025
  6. LUMRYZ [Suspect]
     Active Substance: SODIUM OXYBATE
     Indication: Cataplexy
     Dosage: 7.5 G, ONCE NIGHTLY AT BEDTIME
     Route: 048
     Dates: start: 2025, end: 2025
  7. LUMRYZ [Suspect]
     Active Substance: SODIUM OXYBATE
     Indication: Narcolepsy
     Dosage: 9 G, ONCE NIGHTLY
     Route: 048
     Dates: start: 2025, end: 2025
  8. LUMRYZ [Suspect]
     Active Substance: SODIUM OXYBATE
     Indication: Cataplexy
     Dosage: 9 G, ONCE NIGHTLY
     Route: 048
     Dates: start: 2025
  9. WAKIX [Concomitant]
     Active Substance: PITOLISANT HYDROCHLORIDE
     Dosage: 4.45 MG, 1X/DAY, UPON AWAKENING
     Route: 048
  10. WAKIX [Concomitant]
     Active Substance: PITOLISANT HYDROCHLORIDE
     Dosage: 8.9 MG, 1X/DAY, UPON AWAKENING
     Route: 048
  11. WAKIX [Concomitant]
     Active Substance: PITOLISANT HYDROCHLORIDE
     Dosage: 17.8 MG, 1X/DAY, UPON AWAKENING
     Route: 048
  12. PROZAC [Concomitant]
     Active Substance: FLUOXETINE HYDROCHLORIDE
     Dosage: UNK
     Dates: end: 2025
  13. ZOLOFT [Concomitant]
     Active Substance: SERTRALINE HYDROCHLORIDE
     Dosage: UNK
     Dates: start: 2025

REACTIONS (7)
  - Mental disorder [Unknown]
  - Hospitalisation [Not Recovered/Not Resolved]
  - Road traffic accident [Recovered/Resolved]
  - Myalgia [Not Recovered/Not Resolved]
  - Anxiety [Unknown]
  - Weight decreased [Not Recovered/Not Resolved]
  - Unevaluable event [Unknown]

NARRATIVE: CASE EVENT DATE: 20250101
